FAERS Safety Report 17795825 (Version 3)
Quarter: 2020Q3

REPORT INFORMATION
  Report Type: Report from Study
  Country: ES (occurrence: ES)
  Receive Date: 20200516
  Receipt Date: 20200905
  Transmission Date: 20201102
  Serious: Yes (Hospitalization)
  Sender: FDA-Public Use
  Company Number: ES-ACCORD-182022

PATIENT
  Age: 85 Year
  Sex: Female

DRUGS (6)
  1. LOSARTAN. [Interacting]
     Active Substance: LOSARTAN
     Indication: HYPERTENSION
     Dosage: LOSARTAN 7157A, V
     Route: 048
     Dates: start: 201209
  2. SIMVASTATIN. [Concomitant]
     Active Substance: SIMVASTATIN
     Indication: DYSLIPIDAEMIA
     Dosage: SIMVASTATIN 1023A, 10 MG, QD
     Route: 048
     Dates: start: 201209
  3. AMLODIPINE [Concomitant]
     Active Substance: AMLODIPINE BESYLATE
     Indication: HYPERTENSION
     Dosage: AMLODIPINE 2503A, 5 MG, QD
     Route: 048
     Dates: start: 20110112
  4. RANITIDINE. [Concomitant]
     Active Substance: RANITIDINE
     Dosage: RANITIDINE 2A, 300 MG, QD
     Route: 048
     Dates: start: 20140227, end: 20161105
  5. SERTRALINE [Concomitant]
     Active Substance: SERTRALINE HYDROCHLORIDE
     Dosage: SERTRALINE 2537A, 50 MG, QD
     Route: 048
     Dates: start: 201408, end: 20161105
  6. HYDROCHLOROTHIAZIDE. [Suspect]
     Active Substance: HYDROCHLOROTHIAZIDE
     Indication: HYPERTENSION
     Dosage: HYDROCHLOROTHIAZIDE 1343A, 12.5 MG, QD
     Route: 048
     Dates: start: 20100702, end: 20161105

REACTIONS (2)
  - Drug interaction [Unknown]
  - Hyponatraemia [Recovered/Resolved]

NARRATIVE: CASE EVENT DATE: 20161102
